FAERS Safety Report 5224702-2 (Version None)
Quarter: 2007Q1

REPORT INFORMATION
  Report Type: 
  Country: None (occurrence: None)
  Receive Date: 20070131
  Receipt Date: 20070119
  Transmission Date: 20070707
  Serious: Yes (Death, Life-Threatening, Other)
  Sender: FDA-Public Use
  Company Number: GB-JNJFOC-20070105054

PATIENT
  Sex: Female
  Weight: 72 kg

DRUGS (8)
  1. REMICADE [Suspect]
     Indication: DRUG USE FOR UNKNOWN INDICATION
     Route: 042
  2. METHOTREXATE [Concomitant]
  3. PREDNISOLONE [Concomitant]
  4. DIPYRIDAMOLE [Concomitant]
  5. FOLIC ACID [Concomitant]
  6. HYPROMELLOSE [Concomitant]
  7. LOSARTAN POTASSIUM [Concomitant]
  8. PARACETAMOL [Concomitant]

REACTIONS (1)
  - DEATH [None]
